FAERS Safety Report 6286065-3 (Version None)
Quarter: 2009Q3

REPORT INFORMATION
  Report Type: 
  Country: None (occurrence: None)
  Receive Date: 20090728
  Receipt Date: 20090724
  Transmission Date: 20100115
  Serious: Yes (Death, Hospitalization)
  Sender: FDA-Public Use
  Company Number: JP-BAYER-200912512BYL

PATIENT
  Age: 70 Year
  Sex: Male

DRUGS (1)
  1. NEXAVAR [Suspect]
     Indication: HEPATIC NEOPLASM MALIGNANT NON-RESECTABLE
     Dosage: UNIT DOSE: 200 MG
     Route: 048
     Dates: start: 20090630

REACTIONS (3)
  - ARTERIAL THROMBOSIS [None]
  - DIARRHOEA [None]
  - ERYTHEMA MULTIFORME [None]
